FAERS Safety Report 25752258 (Version 2)
Quarter: 2025Q4

REPORT INFORMATION
  Report Type: Spontaneous
  Country: US (occurrence: US)
  Receive Date: 20250902
  Receipt Date: 20251118
  Transmission Date: 20260117
  Serious: Yes (Other)
  Sender: BRISTOL-MYERS SQUIBB COMPANY
  Company Number: US-BRISTOL-MYERS SQUIBB COMPANY-2025-118930

PATIENT
  Age: 75 Year
  Sex: Male
  Weight: 71.03 kg

DRUGS (21)
  1. VIDAZA [Suspect]
     Active Substance: AZACITIDINE
     Indication: Iron deficiency anaemia
     Dosage: 5 DAYS EVERY 28 DAYS
     Route: 058
     Dates: start: 20250324, end: 202509
  2. JAKAFI [Suspect]
     Active Substance: RUXOLITINIB
     Indication: Chronic myelomonocytic leukaemia
     Dosage: BID, THERAPY DURATION: 1 MONTH 20 DAYS
     Route: 048
     Dates: start: 20250324, end: 20250513
  3. FERROUS SULFATE [Concomitant]
     Active Substance: FERROUS SULFATE
     Indication: Product used for unknown indication
     Dosage: 325 (65) FE MG, TAKE 1 TABLET (325 MG TOTAL)?BY MOUTH 1 (ONE) TIME A DAY WITH BREAKFAST.
     Route: 048
     Dates: start: 20241101
  4. TYLENOL [Concomitant]
     Active Substance: ACETAMINOPHEN
     Indication: Pain
     Dosage: TAKE 2 TABLETS (1,000 MG TOTAL) BY MOUTH EVERY?6 (SIX) HOURS AS NEEDED FOR MILD PAIN OR MODERATE PAIN.
     Route: 048
     Dates: start: 20231219
  5. ARICEPT [Concomitant]
     Active Substance: DONEPEZIL HYDROCHLORIDE
     Indication: Product used for unknown indication
     Dosage: TAKE 1 TABLET (10 MG TOTAL) BY MOUTH AT BEDTIME
     Dates: start: 20231006
  6. IMODIUM A-D [Concomitant]
     Active Substance: LOPERAMIDE HYDROCHLORIDE
     Indication: Diarrhoea
     Dosage: TAKE ONE CAPSULE (2 MG TOTAL) BY MOUTH FOUR TIMES A DAY A? NEEDED?FOR DIARRHEA
     Route: 048
     Dates: start: 20241108
  7. LIPITOR [Concomitant]
     Active Substance: ATORVASTATIN CALCIUM
     Indication: Product used for unknown indication
     Dosage: TAKE 1 TABLET (40MG TOTAL) BY MOUTH ONE TIME A DAY
     Route: 048
     Dates: start: 20220301
  8. VITAMINS [Concomitant]
     Active Substance: VITAMINS
     Indication: Product used for unknown indication
     Dosage: TAKE 1 TABLET BY MOUTH 1 (ONE) TIME A DAY.
     Route: 048
  9. VITAMINS [Concomitant]
     Active Substance: VITAMINS
     Dosage: TAKE 1 TABLET BY MOUTH 1 (ONE) TIME A DAY.
     Route: 048
  10. ONDANSETRON [Concomitant]
     Active Substance: ONDANSETRON
     Indication: Product used for unknown indication
  11. ZOLOFT [Concomitant]
     Active Substance: SERTRALINE HYDROCHLORIDE
     Indication: Product used for unknown indication
     Dosage: TAKE 1 TABLET (50 MG TOTAL) BY MOUTH 1 (ONE) TIME A DAY.
     Route: 048
     Dates: start: 20230530
  12. DONEPEZIL HYDROCHLORIDE [Concomitant]
     Active Substance: DONEPEZIL HYDROCHLORIDE
     Indication: Product used for unknown indication
  13. MITIGARE [Concomitant]
     Active Substance: COLCHICINE
     Indication: Product used for unknown indication
     Route: 048
  14. LANOXIN [Concomitant]
     Active Substance: DIGOXIN
     Indication: Product used for unknown indication
     Route: 048
  15. LOPRESSOR [Concomitant]
     Active Substance: METOPROLOL TARTRATE
     Indication: Atrial fibrillation
     Route: 048
     Dates: start: 20241127
  16. TYLENOL [Concomitant]
     Active Substance: ACETAMINOPHEN
     Indication: Pain
     Route: 048
  17. CULTURELLE [Concomitant]
     Active Substance: LACTOBACILLUS RHAMNOSUS
     Indication: Product used for unknown indication
     Dosage: 10 BILLION CELL, TAKE 1 CAPSULE BY MOUTH 1 (ONE) TIME A DAY.
     Route: 048
  18. PROAMATINE [Concomitant]
     Active Substance: MIDODRINE HYDROCHLORIDE
     Indication: Product used for unknown indication
     Dosage: TAKE 1 TABLET (5MG TOTAL) BY MOUTH 2 (TWO) TIMES A DAY. TAKE ONE DOSE DURING DAY AND SECOND DOSE AT LEAST 4 HOURS PRIOR TO HS
     Route: 048
  19. DITROPAN [Concomitant]
     Active Substance: OXYBUTYNIN CHLORIDE
     Indication: Bladder pain
     Dosage: TAKE 1 TABLET (5 MG TOTAL) BY MOUTH 3 (THREE) TIMES A DAY AS NEEDED
     Route: 048
     Dates: start: 20240202
  20. ELIQUIS [Concomitant]
     Active Substance: APIXABAN
     Indication: Product used for unknown indication
  21. ASPIRIN [Concomitant]
     Active Substance: ASPIRIN
     Indication: Product used for unknown indication

REACTIONS (4)
  - Blood chloride increased [Unknown]
  - Blood glucose increased [Unknown]
  - Off label use [Unknown]
  - Thrombocytopenia [Recovered/Resolved]

NARRATIVE: CASE EVENT DATE: 20250519
